FAERS Safety Report 10432825 (Version 2)
Quarter: 2014Q3

REPORT INFORMATION
  Report Type: Spontaneous
  Country: JP (occurrence: JP)
  Receive Date: 20140905
  Receipt Date: 20140905
  Transmission Date: 20150326
  Serious: Yes (Hospitalization, Other)
  Sender: FDA-Public Use
  Company Number: PHHY2014JP017957

PATIENT
  Age: 72 Year
  Sex: Female
  Weight: 42 kg

DRUGS (7)
  1. NEORAL [Suspect]
     Active Substance: CYCLOSPORINE
     Dosage: 50 MG, UNK
     Route: 048
     Dates: start: 20130821, end: 20140122
  2. NEORAL [Suspect]
     Active Substance: CYCLOSPORINE
     Indication: NEPHROTIC SYNDROME
     Dosage: 75 MG, DAILY (0.5 MG/KG)
     Route: 048
     Dates: start: 20130725
  3. PREDNISOLONE. [Suspect]
     Active Substance: PREDNISOLONE
     Dosage: 30 MG, HALF PULSE THERAPY
  4. PREDNISOLONE. [Suspect]
     Active Substance: PREDNISOLONE
     Dosage: HALF PULSE THERAPY
  5. ADRENAL [Concomitant]
     Active Substance: EPINEPHRINE
     Dosage: 35 MG, UNK
     Route: 048
     Dates: start: 201209
  6. ADRENAL [Concomitant]
     Active Substance: EPINEPHRINE
     Dosage: 7.5 MG, UNK
     Route: 048
  7. PREDNISOLONE. [Suspect]
     Active Substance: PREDNISOLONE
     Dosage: DOSE DECRASED

REACTIONS (6)
  - Drug-induced liver injury [Unknown]
  - Decreased appetite [Unknown]
  - Ovarian enlargement [Unknown]
  - Inflammation [Unknown]
  - Uterine enlargement [Unknown]
  - Ovarian abscess [Recovered/Resolved]

NARRATIVE: CASE EVENT DATE: 20130821
